FAERS Safety Report 9225791 (Version 1)
Quarter: 2013Q2

REPORT INFORMATION
  Report Type: Spontaneous
  Country: US (occurrence: None)
  Receive Date: 20130410
  Receipt Date: 20130410
  Transmission Date: 20140414
  Serious: Yes (Hospitalization)
  Sender: FDA-Public Use
  Company Number: None

PATIENT
  Age: 83 Year
  Sex: Male
  Weight: 67.5 kg

DRUGS (10)
  1. ASA [Suspect]
     Indication: PROPHYLAXIS
     Dosage: CHRONIC
     Route: 048
  2. FINASTERIDE [Concomitant]
  3. TEMAZEPAM [Concomitant]
  4. TAMSULOSIN [Concomitant]
  5. CITALOPRAM [Concomitant]
  6. ATIVAN [Concomitant]
  7. VIT D [Concomitant]
  8. SIMVASTATIN [Concomitant]
  9. RAMIPRIL [Concomitant]
  10. FELODIPINE [Concomitant]

REACTIONS (5)
  - Upper gastrointestinal haemorrhage [None]
  - Anaemia [None]
  - Gastritis erosive [None]
  - Duodenal ulcer [None]
  - Delirium [None]
